FAERS Safety Report 5496171-9 (Version None)
Quarter: 2007Q4

REPORT INFORMATION
  Report Type: 
  Country: None (occurrence: None)
  Receive Date: 20071023
  Receipt Date: 20071023
  Transmission Date: 20080405
  Serious: No
  Sender: FDA-Public Use
  Company Number: None

PATIENT
  Age: 36 Year
  Sex: Female
  Weight: 62.1428 kg

DRUGS (3)
  1. PIROXICAM [Suspect]
     Indication: MYALGIA
     Dosage: 20MG ONCE DAILY PO
     Route: 048
     Dates: start: 20070510, end: 20070511
  2. ZANTAC [Concomitant]
  3. FLEXERIL [Concomitant]

REACTIONS (2)
  - BLEPHAROSPASM [None]
  - MUSCULOSKELETAL STIFFNESS [None]
